FAERS Safety Report 21648305 (Version 1)
Quarter: 2022Q4

REPORT INFORMATION
  Report Type: Other
  Country: None (occurrence: JP)
  Receive Date: 20221128
  Receipt Date: 20221128
  Transmission Date: 20230113
  Serious: Yes (Hospitalization, Other)
  Sender: FDA-Public Use
  Company Number: JP-Vista Pharmaceuticals Inc.-2135275

PATIENT
  Age: 73 Year
  Sex: Male

DRUGS (10)
  1. SULFAMETHOXAZOLE AND TRIMETHOPRIM [Suspect]
     Active Substance: SULFAMETHOXAZOLE\TRIMETHOPRIM
     Indication: COVID-19
     Route: 065
  2. CICLESONIDE [Suspect]
     Active Substance: CICLESONIDE
     Route: 065
  3. MEROPENEM [Suspect]
     Active Substance: MEROPENEM
     Route: 042
  4. PIPERACILLIN AND TAZOBACTAM [Suspect]
     Active Substance: PIPERACILLIN SODIUM\TAZOBACTAM SODIUM
     Route: 042
  5. VANCOMYCIN HYDROCHLORIDE [Suspect]
     Active Substance: VANCOMYCIN HYDROCHLORIDE
     Route: 065
  6. DEXAMETHASONE [Suspect]
     Active Substance: DEXAMETHASONE
     Route: 065
  7. PREDNISOLONE [Suspect]
     Active Substance: PREDNISOLONE
     Route: 065
  8. FAVIPIRAVIR [Concomitant]
     Active Substance: FAVIPIRAVIR
     Route: 065
  9. REMDESIVIR [Concomitant]
     Active Substance: REMDESIVIR
     Route: 065
  10. ACYCLOVIR [Concomitant]
     Active Substance: ACYCLOVIR
     Route: 065

REACTIONS (1)
  - Systemic candida [Recovering/Resolving]
